FAERS Safety Report 9345291 (Version 1)
Quarter: 2013Q2

REPORT INFORMATION
  Report Type: Spontaneous
  Country: US (occurrence: US)
  Receive Date: 20130613
  Receipt Date: 20130613
  Transmission Date: 20140414
  Serious: Yes (Life-Threatening)
  Sender: FDA-Public Use
  Company Number: US-ROCHE-1229015

PATIENT
  Age: 68 Year
  Sex: Female
  Weight: 90.35 kg

DRUGS (16)
  1. XOLAIR [Suspect]
     Indication: ANAPHYLACTIC REACTION
     Route: 058
     Dates: start: 200404, end: 200811
  2. XOLAIR [Suspect]
     Route: 058
     Dates: start: 20100407, end: 20120626
  3. XOLAIR [Suspect]
     Route: 058
     Dates: start: 20121030, end: 20130328
  4. NASONEX [Concomitant]
     Indication: RHINITIS ALLERGIC
     Route: 045
     Dates: start: 2004
  5. LEXAPRO [Concomitant]
     Route: 065
  6. PERCOCET [Concomitant]
  7. ACCOLATE [Concomitant]
     Indication: ASTHMA
     Route: 065
  8. CLARINEX (UNITED STATES) [Concomitant]
     Indication: RHINITIS ALLERGIC
     Route: 050
     Dates: start: 2004
  9. PATADAY [Concomitant]
     Dosage: DAILY
     Route: 065
  10. SYMBICORT [Concomitant]
     Indication: ASTHMA
     Route: 050
  11. SLO-BID [Concomitant]
     Dosage: TWICE DAILY
     Route: 065
  12. ACIPHEX [Concomitant]
     Route: 065
  13. XANAX [Concomitant]
     Route: 065
  14. CATAPRES [Concomitant]
     Route: 065
  15. LONOX [Concomitant]
     Dosage: DAILY
     Route: 065
  16. SYNTHROID [Concomitant]
     Route: 065

REACTIONS (2)
  - Chest discomfort [Not Recovered/Not Resolved]
  - Anaphylactic reaction [Recovered/Resolved]
